FAERS Safety Report 7069256-3 (Version None)
Quarter: 2010Q4

REPORT INFORMATION
  Report Type: 
  Country: None (occurrence: None)
  Receive Date: 20101020
  Receipt Date: 20101006
  Transmission Date: 20110411
  Serious: Yes (Other)
  Sender: FDA-Public Use
  Company Number: FKO201000444

PATIENT
  Age: 54 Year
  Sex: Female

DRUGS (4)
  1. FLUOROURACIL [Suspect]
     Indication: PANCREATIC CARCINOMA
     Dosage: (400 MG/M2) INTRAVENOUS BOLUS ; (2400 MG/M2,43-HOUR CONTINUOUS INFUSION) INTRAVENOUS BOLUS
     Route: 040
  2. FLUOROURACIL [Suspect]
     Dosage: (1300 MG) INTRAVENOUS DRIP
     Route: 041
  3. OXALIPLATIN (OXALIPLATIN) (OXALIPLATIN) [Concomitant]
  4. FOLINIC ACID (FOLINIC ACID) (FOLINIC ACID) [Concomitant]

REACTIONS (7)
  - ASPARTATE AMINOTRANSFERASE INCREASED [None]
  - AZOTAEMIA [None]
  - BLOOD BILIRUBIN INCREASED [None]
  - HYPOCAPNIA [None]
  - NEUROTOXICITY [None]
  - SOMNOLENCE [None]
  - STUPOR [None]
